FAERS Safety Report 9580307 (Version 2)
Quarter: 2014Q1

REPORT INFORMATION
  Report Type: Spontaneous
  Country: US (occurrence: US)
  Receive Date: 20131002
  Receipt Date: 20140306
  Transmission Date: 20141002
  Serious: Yes (Hospitalization, Other)
  Sender: FDA-Public Use
  Company Number: US-BAYER-2013-118638

PATIENT
  Age: 29 Year
  Sex: Female
  Weight: 70.3 kg

DRUGS (1)
  1. MIRENA [Suspect]
     Indication: CONTRACEPTION
     Dosage: 20 MCG/24HR, CONT
     Route: 015
     Dates: start: 20120112, end: 20130104

REACTIONS (11)
  - Uterine perforation [None]
  - Infection [None]
  - Menorrhagia [None]
  - Medical device pain [None]
  - Injury [None]
  - Emotional distress [None]
  - Device dislocation [None]
  - Abdominal pain lower [None]
  - Headache [None]
  - Pain in extremity [None]
  - Vaginal haemorrhage [None]
